FAERS Safety Report 18422219 (Version 2)
Quarter: 2020Q4

REPORT INFORMATION
  Report Type: Spontaneous
  Country: IT (occurrence: IT)
  Receive Date: 20201023
  Receipt Date: 20201217
  Transmission Date: 20210114
  Serious: Yes (Other)
  Sender: FDA-Public Use
  Company Number: IT-ASTRAZENECA-2020SF35984

PATIENT
  Age: 30527 Day
  Sex: Male

DRUGS (11)
  1. TAGRISSO [Interacting]
     Active Substance: OSIMERTINIB
     Indication: LUNG NEOPLASM MALIGNANT
     Route: 048
     Dates: end: 20200910
  2. PLAUNAC [Concomitant]
     Active Substance: OLMESARTAN MEDOXOMIL
  3. GABAPENTIN. [Concomitant]
     Active Substance: GABAPENTIN
  4. MEPRAL [Concomitant]
     Active Substance: OMEPRAZOLE SODIUM
  5. TAGRISSO [Suspect]
     Active Substance: OSIMERTINIB
     Indication: LUNG NEOPLASM MALIGNANT
     Route: 048
     Dates: start: 20200803
  6. ELIQUIS [Concomitant]
     Active Substance: APIXABAN
  7. CONCOR [Concomitant]
     Active Substance: BISOPROLOL FUMARATE
  8. INSULIN THERAPY [Concomitant]
  9. TAGRISSO [Interacting]
     Active Substance: OSIMERTINIB
     Indication: LUNG NEOPLASM MALIGNANT
     Route: 048
     Dates: start: 20200825, end: 20200909
  10. TAGRISSO [Interacting]
     Active Substance: OSIMERTINIB
     Indication: LUNG NEOPLASM MALIGNANT
     Route: 048
     Dates: start: 20200710, end: 20200811
  11. LUVION [Concomitant]

REACTIONS (4)
  - Syncope [Unknown]
  - Anaemia [Unknown]
  - Haemothorax [Unknown]
  - Drug interaction [Unknown]

NARRATIVE: CASE EVENT DATE: 20200806
